FAERS Safety Report 20629077 (Version 1)
Quarter: 2022Q1

REPORT INFORMATION
  Report Type: Spontaneous
  Country: CN (occurrence: None)
  Receive Date: 20220323
  Receipt Date: 20220323
  Transmission Date: 20220423
  Serious: Yes (Hospitalization)
  Sender: FDA-Public Use
  Company Number: CN-Eisai Medical Research-EC-2022-110844

PATIENT
  Age: 66 Year
  Sex: Female
  Weight: 62 kg

DRUGS (1)
  1. LENVIMA [Suspect]
     Active Substance: LENVATINIB
     Indication: Hepatic cancer
     Route: 048
     Dates: start: 20220107, end: 20220214

REACTIONS (1)
  - Platelet count decreased [Unknown]

NARRATIVE: CASE EVENT DATE: 20220214
